FAERS Safety Report 8048000 (Version 4)
Quarter: 2012Q4

REPORT INFORMATION
  Report Type: 
  Country: CA (occurrence: CA)
  Receive Date: 20110721
  Receipt Date: 20121023
  Transmission Date: 20130627
  Serious: Yes (Other)
  Sender: FDA-Public Use
  Company Number: PHHY2011CA62814

PATIENT
  Age: 83 Year
  Sex: Female

DRUGS (11)
  1. ACLASTA [Suspect]
     Indication: OSTEOPOROSIS
     Dosage: 5 mg, once yearly
     Route: 042
     Dates: start: 20100723
  2. ACLASTA [Suspect]
     Dosage: 5 mg, once yearly
     Route: 042
     Dates: start: 20110819
  3. ACLASTA [Suspect]
     Dosage: 5 mg / 100ml
     Route: 042
     Dates: start: 20121016
  4. VITAMIN D [Concomitant]
     Dosage: 2000 IU, UNK
  5. HYDROCHLOROTHIAZIDE [Concomitant]
     Dosage: 12.5 mg, UNK
  6. SIMVASTATIN [Concomitant]
     Dosage: UNK UKN, UNK
     Route: 048
  7. VASOTEC [Concomitant]
  8. LORAZEPAM [Concomitant]
  9. TYLENOL [Concomitant]
  10. ELITROPIN [Concomitant]
  11. RISPERDAL [Concomitant]

REACTIONS (2)
  - Polyp [Unknown]
  - Infusion site extravasation [Recovered/Resolved]
